FAERS Safety Report 19729875 (Version 2)
Quarter: 2021Q4

REPORT INFORMATION
  Report Type: Report from Study
  Country: US (occurrence: US)
  Receive Date: 20210821
  Receipt Date: 20211221
  Transmission Date: 20220303
  Serious: Yes (Other)
  Sender: FDA-Public Use
  Company Number: US-ABBVIE-21K-163-4045187-00

PATIENT
  Sex: Female

DRUGS (1)
  1. HUMIRA [Suspect]
     Active Substance: ADALIMUMAB
     Indication: Crohn^s disease
     Dosage: CITRATE FREE
     Route: 058

REACTIONS (6)
  - Gastrointestinal disorder [Unknown]
  - Feeling abnormal [Unknown]
  - Anxiety [Unknown]
  - Insomnia [Unknown]
  - Urticaria [Unknown]
  - Pain in extremity [Unknown]
